FAERS Safety Report 19418854 (Version 6)
Quarter: 2021Q3

REPORT INFORMATION
  Report Type: Spontaneous
  Country: LT (occurrence: LT)
  Receive Date: 20210615
  Receipt Date: 20210818
  Transmission Date: 20211014
  Serious: Yes (Other)
  Sender: FDA-Public Use
  Company Number: LT-MYLANLABS-2021M1033866

PATIENT
  Age: 73 Year
  Sex: Female

DRUGS (11)
  1. PACLITAXEL. [Suspect]
     Active Substance: PACLITAXEL
     Indication: ADENOCARCINOMA GASTRIC
  2. IRINOTECAN [Suspect]
     Active Substance: IRINOTECAN
     Indication: GASTRIC CANCER STAGE III
     Dosage: UNK, CYCLE (6 CYCLES)
     Route: 065
     Dates: start: 2019
  3. PACLITAXEL. [Suspect]
     Active Substance: PACLITAXEL
     Indication: GASTRIC CANCER STAGE III
     Dosage: UNK, CYCLE (6 CYCLE)
     Route: 065
     Dates: start: 201901, end: 2019
  4. OXALIPLATIN. [Suspect]
     Active Substance: OXALIPLATIN
     Indication: GASTRIC CANCER
     Dosage: UNK UNK, 4  CYCLE
     Route: 065
     Dates: start: 2018
  5. OXALIPLATIN. [Suspect]
     Active Substance: OXALIPLATIN
     Indication: GASTRIC CANCER STAGE III
     Dosage: UNK UNK, UP TO 8 CYCLES (AFTER SURGERY)
     Route: 065
  6. DOCETAXEL. [Suspect]
     Active Substance: DOCETAXEL
     Indication: GASTRIC CANCER STAGE III
     Dosage: UNK UNK, 4 CYCLE
     Route: 065
  7. 5?FLUOROURACIL                     /00098801/ [Suspect]
     Active Substance: FLUOROURACIL
     Indication: GASTRIC CANCER
     Dosage: UNK, 4 CYCLE
     Route: 065
     Dates: start: 2018
  8. 5?FLUOROURACIL                     /00098801/ [Suspect]
     Active Substance: FLUOROURACIL
     Indication: GASTRIC CANCER STAGE III
     Dosage: UNK, UP TO 8 CYCLES (AFTER SURGERY)
     Route: 065
  9. DOCETAXEL. [Suspect]
     Active Substance: DOCETAXEL
     Indication: GASTRIC CANCER
     Dosage: UNK, UP TO 8 CYCLES (AFTER SURGERY)
     Route: 065
     Dates: start: 2018
  10. RAMUCIRUMAB [Suspect]
     Active Substance: RAMUCIRUMAB
     Indication: ADENOCARCINOMA GASTRIC
     Dosage: UNK, CYCLE (CYCLIC)
     Route: 065
     Dates: start: 201901, end: 201908
  11. RAMUCIRUMAB [Suspect]
     Active Substance: RAMUCIRUMAB
     Indication: GASTRIC CANCER STAGE III
     Dosage: UNK, CYCLE (CYCLIC)
     Route: 065

REACTIONS (13)
  - Diarrhoea [Recovering/Resolving]
  - Metastases to peritoneum [Unknown]
  - Polyneuropathy [Recovering/Resolving]
  - Gastric cancer [Unknown]
  - Product use in unapproved indication [Unknown]
  - Ascites [Unknown]
  - Therapy partial responder [Unknown]
  - Off label use [Unknown]
  - Therapeutic product effect incomplete [Unknown]
  - Anaemia [Recovering/Resolving]
  - Malignant neoplasm progression [Unknown]
  - Haematotoxicity [Recovering/Resolving]
  - Neutropenia [Recovering/Resolving]

NARRATIVE: CASE EVENT DATE: 2019
